FAERS Safety Report 9906240 (Version 2)
Quarter: 2014Q1

REPORT INFORMATION
  Report Type: Spontaneous
  Country: US (occurrence: US)
  Receive Date: 20140218
  Receipt Date: 20140218
  Transmission Date: 20141002
  Serious: No
  Sender: FDA-Public Use
  Company Number: US-GILEAD-2012-0050834

PATIENT
  Sex: Male

DRUGS (3)
  1. LETAIRIS [Suspect]
     Indication: PULMONARY HYPERTENSION
     Dosage: 10 MG, UNK
     Route: 048
     Dates: start: 20100409
  2. REMODULIN [Suspect]
  3. ADCIRCA [Concomitant]

REACTIONS (5)
  - Pain [Unknown]
  - Pain [Unknown]
  - Erythema [Unknown]
  - Diarrhoea [Unknown]
  - Pain in jaw [Unknown]
